FAERS Safety Report 10175810 (Version 3)
Quarter: 2014Q4

REPORT INFORMATION
  Report Type: Report from Study
  Country: JP (occurrence: JP)
  Receive Date: 20140516
  Receipt Date: 20141203
  Transmission Date: 20150528
  Serious: Yes (Death, Life-Threatening, Other)
  Sender: FDA-Public Use
  Company Number: JP-009507513-2011SP042636

PATIENT
  Age: 23 Year
  Sex: Male
  Weight: 59 kg

DRUGS (16)
  1. SENNA [Concomitant]
     Active Substance: SENNA LEAF\SENNOSIDES\SENNOSIDES A AND B
     Dosage: DAILY DOSAGE UNKNOWN, UNKNOWN
     Route: 048
     Dates: start: 20100816, end: 20101222
  2. TEMOZOLOMIDE. [Suspect]
     Active Substance: TEMOZOLOMIDE
     Indication: ANAPLASTIC ASTROCYTOMA
     Dosage: 75 MG/M2, QD
     Route: 048
     Dates: start: 20100910, end: 20101021
  3. RINDERON (BETAMETHASONE SODIUM PHOSPHATE) [Concomitant]
     Dosage: DAILY DOSAGE UNKNOWN
     Route: 042
     Dates: start: 20100806
  4. TEMOZOLOMIDE. [Suspect]
     Active Substance: TEMOZOLOMIDE
     Dosage: 150 MG/M2, QD
     Route: 048
     Dates: start: 20101214, end: 20101218
  5. TEMOZOLOMIDE. [Suspect]
     Active Substance: TEMOZOLOMIDE
     Dosage: 200 MG/M2, QD
     Route: 048
     Dates: start: 20110208, end: 20110212
  6. BAKTAR [Concomitant]
     Active Substance: SULFAMETHOXAZOLE\TRIMETHOPRIM
     Indication: ANTIFUNGAL PROPHYLAXIS
     Dosage: DAILY DOSAGE UNKNOWN, UNKNOWN
     Route: 048
     Dates: start: 20100912, end: 20101028
  7. MAGNESIUM OXIDE. [Concomitant]
     Active Substance: MAGNESIUM OXIDE
     Dosage: DAILY DOSAGE UNKNOWN, UNKNOWN
     Route: 048
     Dates: start: 20100914, end: 20101206
  8. GASTER [Concomitant]
     Active Substance: FAMOTIDINE
     Indication: ANAPLASTIC ASTROCYTOMA
     Dosage: DAILY DOSAGE UNKNOWN, UNKNOWN
     Route: 042
     Dates: start: 20100706, end: 20100927
  9. GASTER [Concomitant]
     Active Substance: FAMOTIDINE
     Indication: ANAPLASTIC ASTROCYTOMA
     Dosage: DAILY DOSAGE UNKNOWN, UNKNOWN
     Route: 048
     Dates: start: 20100706, end: 20100927
  10. RINDERON V [Concomitant]
     Active Substance: BETAMETHASONE VALERATE
     Dosage: DAILY DOSAGE UNKNOWN, UNKNOWN
     Route: 048
     Dates: start: 20100806
  11. TAKEPRON [Concomitant]
     Active Substance: LANSOPRAZOLE
     Dosage: DAILY DOSAGE UNKNOWN
     Route: 048
     Dates: start: 20100907, end: 20110628
  12. NASEA [Concomitant]
     Active Substance: RAMOSETRON HYDROCHLORIDE
     Indication: PROPHYLAXIS
     Dosage: DAILY DOSAGE UNKNOWN, UNKNOWN
     Route: 048
     Dates: start: 20100910, end: 20101021
  13. TEMOZOLOMIDE. [Suspect]
     Active Substance: TEMOZOLOMIDE
     Dosage: 200 MG/M2, QD
     Route: 048
     Dates: start: 20110111, end: 20110115
  14. TEMOZOLOMIDE. [Suspect]
     Active Substance: TEMOZOLOMIDE
     Dosage: 200 MG/M2, QD
     Route: 048
     Dates: start: 20110412, end: 20110416
  15. TEMOZOLOMIDE. [Suspect]
     Active Substance: TEMOZOLOMIDE
     Dosage: 200 MG/M2, QD
     Route: 048
     Dates: start: 20110308, end: 20110312
  16. CORTRIL [Concomitant]
     Active Substance: HYDROCORTISONE
     Indication: ANAPLASTIC ASTROCYTOMA
     Dosage: DAILY DOSAGE UNKNOWN, UNKNOWN
     Route: 048
     Dates: start: 20100909, end: 20100930

REACTIONS (9)
  - Shunt infection [Not Recovered/Not Resolved]
  - Lymphocyte count decreased [Not Recovered/Not Resolved]
  - Blood bilirubin increased [Recovered/Resolved]
  - Disease progression [Fatal]
  - Blood bilirubin increased [Recovered/Resolved]
  - IIIrd nerve paralysis [Not Recovered/Not Resolved]
  - Lymphocyte count decreased [Recovered/Resolved]
  - Shunt malfunction [Recovered/Resolved]
  - Shunt malfunction [Recovered/Resolved]

NARRATIVE: CASE EVENT DATE: 20100921
